FAERS Safety Report 8606985-1 (Version None)
Quarter: 2012Q3

REPORT INFORMATION
  Report Type: 
  Country: None (occurrence: None)
  Receive Date: 20120820
  Receipt Date: 20120813
  Transmission Date: 20120928
  Serious: Yes (Hospitalization)
  Sender: FDA-Public Use
  Company Number: US-PFIZER INC-2012198715

PATIENT
  Age: 65 Year
  Sex: Female
  Weight: 83.45 kg

DRUGS (15)
  1. BLINDED THERAPY [Suspect]
     Indication: OESOPHAGEAL ADENOCARCINOMA
     Dosage: ON DAY 1 EVERY 14 DAYS
     Route: 042
     Dates: start: 20120726
  2. TRAMADOL [Concomitant]
     Dosage: UNK
     Dates: start: 20120601
  3. COMPAZINE [Concomitant]
     Dosage: UNK
     Dates: start: 20120726
  4. COLACE [Concomitant]
     Dosage: UNK
     Dates: start: 20120524
  5. PERCOCET [Concomitant]
     Dosage: UNK
     Dates: start: 20120713
  6. SUDAFED 12 HOUR [Concomitant]
     Dosage: UNK
     Dates: start: 20120401
  7. NEURONTIN [Concomitant]
     Dosage: UNK
     Dates: start: 20110601
  8. FLUOROURACIL [Suspect]
     Indication: OESOPHAGEAL ADENOCARCINOMA
     Dosage: 400 MG/M2, CYCLIC, ON DAY 1 EVERY 14 DAYS
     Route: 040
     Dates: start: 20120726
  9. AMBIEN [Concomitant]
     Dosage: UNK
     Dates: start: 20070101
  10. XANAX [Concomitant]
     Dosage: UNK
     Dates: start: 20070101
  11. OXALIPLATIN [Suspect]
     Indication: OESOPHAGEAL ADENOCARCINOMA
     Dosage: 85 MG/M2, CYCLIC, ON DAY 1 EVERY 14 DAYS
     Route: 042
     Dates: start: 20120726
  12. LEUCOVORIN CALCIUM [Suspect]
     Indication: OESOPHAGEAL ADENOCARCINOMA
     Dosage: 400 MG/M2, CYCLIC, ON DAY 1 EVERY 14 DAYS
     Route: 042
     Dates: start: 20120726
  13. FERROUS FUMARATE/MINERALS NOS/VITAMINS NOS [Concomitant]
     Dosage: UNK
     Dates: start: 20120524
  14. FLUOROURACIL [Suspect]
     Dosage: 2400 MG/M2, OVER 46-48 HOURS, ON DAY 1 EVERY 14 DAYS
     Route: 042
     Dates: start: 20120726
  15. MIRALAX [Concomitant]
     Dosage: UNK
     Dates: start: 20120524

REACTIONS (1)
  - PYREXIA [None]
